FAERS Safety Report 8378169-6 (Version None)
Quarter: 2012Q2

REPORT INFORMATION
  Report Type: 
  Country: None (occurrence: None)
  Receive Date: 20120522
  Receipt Date: 20120521
  Transmission Date: 20120825
  Serious: No
  Sender: FDA-Public Use
  Company Number: US-PFIZER INC-2012122414

PATIENT

DRUGS (1)
  1. LYRICA [Suspect]
     Dosage: UNK
     Dates: start: 20120316

REACTIONS (4)
  - CONSTIPATION [None]
  - FEELING ABNORMAL [None]
  - EJACULATION DISORDER [None]
  - DYSURIA [None]
